FAERS Safety Report 7006237-X (Version None)
Quarter: 2010Q3

REPORT INFORMATION
  Report Type: 
  Country: None (occurrence: None)
  Receive Date: 20100921
  Receipt Date: 20100909
  Transmission Date: 20110219
  Serious: Yes (Other)
  Sender: FDA-Public Use
  Company Number: US-PFIZER INC-2010114715

PATIENT
  Sex: Female

DRUGS (2)
  1. NEURONTIN [Suspect]
     Indication: MOVEMENT DISORDER
     Dosage: UNK
  2. GABAPENTIN [Suspect]
     Indication: MOVEMENT DISORDER
     Dosage: UNK
     Dates: start: 20100101

REACTIONS (4)
  - CATARACT [None]
  - DIZZINESS [None]
  - EYE PAIN [None]
  - VISION BLURRED [None]
